FAERS Safety Report 12768603 (Version 1)
Quarter: 2016Q3

REPORT INFORMATION
  Report Type: Spontaneous
  Country: JP (occurrence: JP)
  Receive Date: 20160921
  Receipt Date: 20160921
  Transmission Date: 20161109
  Serious: Yes (Hospitalization)
  Sender: FDA-Public Use
  Company Number: JP-WARNER CHILCOTT 2016-001312

PATIENT
  Age: 66 Year
  Sex: Female

DRUGS (1)
  1. ACTONEL [Suspect]
     Active Substance: RISEDRONATE SODIUM
     Indication: OSTEOPOROSIS
     Route: 048
     Dates: start: 20160325

REACTIONS (11)
  - Vulvovaginal erythema [None]
  - Oedema peripheral [None]
  - Chills [None]
  - Overdose [None]
  - Vulval cellulitis [None]
  - Pyrexia [None]
  - Vulvovaginal swelling [None]
  - Abdominal distension [None]
  - Malaise [None]
  - Inflammation [None]
  - Feeling hot [None]
